FAERS Safety Report 15773276 (Version 1)
Quarter: 2018Q4

REPORT INFORMATION
  Report Type: Spontaneous
  Country: IT (occurrence: IT)
  Receive Date: 20181228
  Receipt Date: 20181228
  Transmission Date: 20190205
  Serious: Yes (Other)
  Sender: FDA-Public Use
  Company Number: IT-MYLANLABS-2018M1096639

PATIENT
  Age: 4 Month
  Sex: Male

DRUGS (16)
  1. PHENOBARBITAL. [Suspect]
     Active Substance: PHENOBARBITAL
     Dosage: 8 MILLIGRAM/KILOGRAM, QD
     Route: 065
  2. LEVETIRACETAM. [Suspect]
     Active Substance: LEVETIRACETAM
     Indication: PARTIAL SEIZURES
     Dosage: 60 MILLIGRAM/KILOGRAM, QD
     Route: 065
  3. POTASSIUM BROMIDE [Suspect]
     Active Substance: POTASSIUM BROMIDE
     Indication: PARTIAL SEIZURES
     Dosage: UP TO 45 MG/KG/DAY
     Route: 065
  4. MIDAZOLAM [Suspect]
     Active Substance: MIDAZOLAM HYDROCHLORIDE
     Indication: PARTIAL SEIZURES
     Dosage: 0.2 MG/KG/HR
     Route: 050
  5. CARBAMAZEPINE. [Concomitant]
     Active Substance: CARBAMAZEPINE
     Indication: PARTIAL SEIZURES
     Route: 065
  6. CLONAZEPAM. [Concomitant]
     Active Substance: CLONAZEPAM
     Indication: PARTIAL SEIZURES
     Route: 048
  7. QUINIDINE [Suspect]
     Active Substance: QUINIDINE
     Dosage: 5 MILLIGRAM/KILOGRAM
     Route: 065
  8. QUINIDINE [Suspect]
     Active Substance: QUINIDINE
     Dosage: AFTER THE SECOND INCREASE TO 50MG/KG, REDUCED TO 35MG/KG
     Route: 065
  9. PHENOBARBITAL. [Suspect]
     Active Substance: PHENOBARBITAL
     Indication: PARTIAL SEIZURES
     Dosage: LATER REDUCED TO 3 MG/KG
     Route: 065
  10. QUINIDINE [Suspect]
     Active Substance: QUINIDINE
     Indication: PARTIAL SEIZURES
     Dosage: INCREASED EVERY 2 TO 4 DAYS OF 4 TO 5 MG/KG (TARGET 60 MG/KG)
     Route: 065
  11. QUINIDINE [Suspect]
     Active Substance: QUINIDINE
     Dosage: CURRENTLY MAINTAINED ON 45 MG/KG IN 4 DIVIDED DOSES
     Route: 065
  12. PYRIDOXINE [Concomitant]
     Active Substance: PYRIDOXINE
     Indication: PARTIAL SEIZURES
     Route: 048
  13. TOPIRAMATE. [Suspect]
     Active Substance: TOPIRAMATE
     Indication: PARTIAL SEIZURES
     Dosage: 5 MILLIGRAM/KILOGRAM, QD
     Route: 065
  14. QUINIDINE [Suspect]
     Active Substance: QUINIDINE
     Dosage: REDUCED DOSE AFTER INCREASED QT-INTERVAL; WAS LATER INCREASED TO 70 MG/KG DAILY
     Route: 065
  15. PHENOBARBITAL. [Suspect]
     Active Substance: PHENOBARBITAL
     Dosage: INCREASED TO 8 MG/KG
     Route: 065
  16. QUINIDINE [Suspect]
     Active Substance: QUINIDINE
     Dosage: AFTER THE DOSE INCREASE, IT WAS AGAIN REDUCED DUE TO INCREASED QT-INTERVAL
     Route: 065

REACTIONS (3)
  - Atrioventricular block [Unknown]
  - Electrocardiogram QT prolonged [Recovered/Resolved]
  - Drug ineffective [Unknown]
